FAERS Safety Report 9131223 (Version 1)
Quarter: 2013Q1

REPORT INFORMATION
  Report Type: Spontaneous
  Country: US (occurrence: US)
  Receive Date: 20130301
  Receipt Date: 20130301
  Transmission Date: 20140127
  Serious: Yes (Other)
  Sender: FDA-Public Use
  Company Number: US-SANOFI-AVENTIS-2013SA019393

PATIENT
  Age: 39 Year
  Sex: Female

DRUGS (6)
  1. UNISOM [Suspect]
  2. OXYCONTIN [Concomitant]
  3. OXYCODONE [Concomitant]
  4. HYDROXYZINE [Concomitant]
  5. FEXOFENIDINE [Concomitant]
  6. NASONEX [Concomitant]

REACTIONS (4)
  - Abortion spontaneous [Unknown]
  - Exposure during pregnancy [Unknown]
  - Uterine haemorrhage [Unknown]
  - Uterine spasm [Unknown]
